FAERS Safety Report 21655106 (Version 1)
Quarter: 2022Q4

REPORT INFORMATION
  Report Type: Spontaneous
  Country: US (occurrence: US)
  Receive Date: 20221129
  Receipt Date: 20221129
  Transmission Date: 20230113
  Serious: Yes (Other)
  Sender: FDA-Public Use
  Company Number: US-PFIZER INC-202201324975

PATIENT
  Age: 63 Year
  Sex: Male
  Weight: 149.69 kg

DRUGS (1)
  1. SOMATROPIN [Suspect]
     Active Substance: SOMATROPIN
     Dosage: UNK, MONTHLY

REACTIONS (3)
  - Brain neoplasm [Unknown]
  - Intentional product misuse [Unknown]
  - Off label use [Unknown]
